FAERS Safety Report 5827799-1 (Version None)
Quarter: 2008Q3

REPORT INFORMATION
  Report Type: 
  Country: None (occurrence: None)
  Receive Date: 20080728
  Receipt Date: 20080717
  Transmission Date: 20090109
  Serious: Yes (Congenital Anomaly)
  Sender: FDA-Public Use
  Company Number: GXKR2008GB06712

PATIENT

DRUGS (3)
  1. CITALOPRAM (NGX) (CITALOPRAM) UNKNOWN [Suspect]
     Dosage: TRANSPLACENTAL
     Route: 064
  2. PROPRANOLOL [Suspect]
     Dosage: TRANSPLACENTAL
     Route: 064
  3. DICLOFENAC SODIUM [Concomitant]

REACTIONS (4)
  - ABORTION INDUCED [None]
  - ANENCEPHALY [None]
  - DRUG EXPOSURE DURING PREGNANCY [None]
  - MATERNAL DRUGS AFFECTING FOETUS [None]
